FAERS Safety Report 9386103 (Version 1)
Quarter: 2013Q3

REPORT INFORMATION
  Report Type: Spontaneous
  Country: US (occurrence: US)
  Receive Date: 20130707
  Receipt Date: 20130707
  Transmission Date: 20140515
  Serious: No
  Sender: FDA-Public Use
  Company Number: US-ASTRAZENECA-2013SE46880

PATIENT
  Age: 65 Year
  Sex: Female
  Weight: 69.4 kg

DRUGS (9)
  1. ENTOCORT EC [Suspect]
     Indication: CROHN^S DISEASE
     Dosage: 9MG
     Route: 048
     Dates: start: 201112, end: 201203
  2. ENTOCORT EC [Suspect]
     Indication: CROHN^S DISEASE
     Dosage: 6MG
     Route: 048
     Dates: start: 201203, end: 201204
  3. ENTOCORT EC [Suspect]
     Indication: CROHN^S DISEASE
     Dosage: 1MG
     Route: 048
     Dates: start: 201204
  4. ENTOCORT EC [Suspect]
     Indication: CROHN^S DISEASE
     Dosage: 3MG
     Route: 048
     Dates: start: 2012, end: 2012
  5. ENTOCORT EC [Suspect]
     Indication: CROHN^S DISEASE
     Dosage: 9MG
     Route: 048
     Dates: start: 201305, end: 201306
  6. ENTOCORT EC [Suspect]
     Indication: CROHN^S DISEASE
     Dosage: 6MG
     Route: 048
     Dates: start: 201306
  7. ENTOCORT EC [Suspect]
     Indication: CROHN^S DISEASE
     Dosage: 3MG
     Route: 048
     Dates: start: 20130614
  8. VITAMINS [Concomitant]
  9. CALCIUM [Concomitant]

REACTIONS (8)
  - Arthralgia [Unknown]
  - Bone pain [Unknown]
  - Pruritus [Unknown]
  - Muscle spasms [Unknown]
  - Muscle spasms [Unknown]
  - Muscle spasms [Unknown]
  - Crying [Unknown]
  - Intentional drug misuse [Unknown]
